FAERS Safety Report 12348521 (Version 2)
Quarter: 2016Q2

REPORT INFORMATION
  Report Type: Spontaneous
  Country: US (occurrence: US)
  Receive Date: 20160509
  Receipt Date: 20160531
  Transmission Date: 20160815
  Serious: Yes (Other)
  Sender: FDA-Public Use
  Company Number: US-GLAXOSMITHKLINE-US2016GSK064894

PATIENT
  Age: 35 Year
  Sex: Female

DRUGS (2)
  1. LAMOTRIGINE TABLET [Suspect]
     Active Substance: LAMOTRIGINE
     Indication: SEIZURE
     Dosage: UNK, U
  2. LAMOTRIGINE PROLONGED-RELEASE TABLET [Suspect]
     Active Substance: LAMOTRIGINE
     Indication: SEIZURE
     Dosage: UNK, U

REACTIONS (9)
  - Product substitution issue [Unknown]
  - Generalised tonic-clonic seizure [Unknown]
  - Amnesia [Unknown]
  - Confusional state [Unknown]
  - Constipation [Unknown]
  - Irritability [Unknown]
  - Anxiety [Unknown]
  - Anal incontinence [Unknown]
  - Drug ineffective [Unknown]

NARRATIVE: CASE EVENT DATE: 20160501
